FAERS Safety Report 6233274-5 (Version None)
Quarter: 2009Q2

REPORT INFORMATION
  Report Type: 
  Country: None (occurrence: None)
  Receive Date: 20090617
  Receipt Date: 20090612
  Transmission Date: 20091009
  Serious: Yes (Death)
  Sender: FDA-Public Use
  Company Number: AU-ROCHE-638144

PATIENT
  Sex: Male

DRUGS (2)
  1. CAPECITABINE [Suspect]
     Dosage: LAST DOSE: 8 APRIL 2009
     Route: 048
     Dates: end: 20090429
  2. BEVACIZUMAB [Suspect]
     Dosage: LAST DOSE: 8 APRIL 2009
     Route: 042
     Dates: end: 20090429

REACTIONS (1)
  - DEATH [None]
